FAERS Safety Report 16977833 (Version 5)
Quarter: 2022Q1

REPORT INFORMATION
  Report Type: Spontaneous
  Country: US (occurrence: US)
  Receive Date: 20191031
  Receipt Date: 20220107
  Transmission Date: 20220423
  Serious: Yes (Other)
  Sender: FDA-Public Use
  Company Number: US-GILEAD-2019-0434755

PATIENT
  Age: 54 Year
  Sex: Male
  Weight: 90.703 kg

DRUGS (14)
  1. ATRIPLA [Suspect]
     Active Substance: EFAVIRENZ\EMTRICITABINE\TENOFOVIR DISOPROXIL FUMARATE
     Indication: HIV infection
     Dosage: UNK
     Route: 048
     Dates: start: 20061010, end: 20140421
  2. ATRIPLA [Suspect]
     Active Substance: EFAVIRENZ\EMTRICITABINE\TENOFOVIR DISOPROXIL FUMARATE
     Dosage: UNK
     Route: 065
     Dates: start: 2006, end: 2016
  3. STRIBILD [Suspect]
     Active Substance: COBICISTAT\ELVITEGRAVIR\EMTRICITABINE\TENOFOVIR DISOPROXIL FUMARATE
     Indication: HIV infection
     Dosage: UNK
     Route: 048
     Dates: start: 20140818, end: 20160824
  4. STRIBILD [Suspect]
     Active Substance: COBICISTAT\ELVITEGRAVIR\EMTRICITABINE\TENOFOVIR DISOPROXIL FUMARATE
     Dosage: UNK
     Route: 065
     Dates: start: 2006, end: 2016
  5. GENVOYA [Concomitant]
     Active Substance: COBICISTAT\ELVITEGRAVIR\EMTRICITABINE\TENOFOVIR ALAFENAMIDE FUMARATE
  6. OXYCODONE [Concomitant]
     Active Substance: OXYCODONE
  7. ADVIL [Concomitant]
     Active Substance: IBUPROFEN
  8. TYLENOL [Concomitant]
     Active Substance: ACETAMINOPHEN
  9. ACETAMINOPHEN [Concomitant]
     Active Substance: ACETAMINOPHEN
  10. CRESTOR [Concomitant]
     Active Substance: ROSUVASTATIN CALCIUM
  11. LOVAZA [Concomitant]
     Active Substance: OMEGA-3-ACID ETHYL ESTERS
  12. VALACYCLOVIR [Concomitant]
     Active Substance: VALACYCLOVIR HYDROCHLORIDE
  13. SERTRALINE [Concomitant]
     Active Substance: SERTRALINE HYDROCHLORIDE
  14. GABAPENTIN [Concomitant]
     Active Substance: GABAPENTIN

REACTIONS (26)
  - Osteonecrosis [Not Recovered/Not Resolved]
  - Subchondral insufficiency fracture [Not Recovered/Not Resolved]
  - Nephrolithiasis [Recovered/Resolved]
  - Multiple fractures [Unknown]
  - Osteonecrosis [Unknown]
  - Ankle fracture [Unknown]
  - Bone disorder [Unknown]
  - Renal failure [Unknown]
  - Intervertebral disc degeneration [Not Recovered/Not Resolved]
  - Intervertebral disc protrusion [Not Recovered/Not Resolved]
  - Vertebral foraminal stenosis [Not Recovered/Not Resolved]
  - Spinal stenosis [Not Recovered/Not Resolved]
  - Osteoarthritis [Not Recovered/Not Resolved]
  - Arthralgia [Not Recovered/Not Resolved]
  - Tendonitis [Not Recovered/Not Resolved]
  - Pain in extremity [Not Recovered/Not Resolved]
  - Haematuria [Recovered/Resolved]
  - Bone density decreased [Unknown]
  - Bone loss [Unknown]
  - Economic problem [Not Recovered/Not Resolved]
  - Anhedonia [Not Recovered/Not Resolved]
  - Emotional distress [Not Recovered/Not Resolved]
  - Anxiety [Not Recovered/Not Resolved]
  - Pain [Not Recovered/Not Resolved]
  - Depression [Recovered/Resolved]
  - Onychomycosis [Unknown]

NARRATIVE: CASE EVENT DATE: 20090101
